FAERS Safety Report 21770269 (Version 1)
Quarter: 2022Q4

REPORT INFORMATION
  Report Type: Spontaneous
  Country: NL (occurrence: NL)
  Receive Date: 20221223
  Receipt Date: 20221223
  Transmission Date: 20230112
  Serious: Yes (Hospitalization)
  Sender: FDA-Public Use
  Company Number: None

PATIENT
  Sex: Male
  Weight: 93 kg

DRUGS (1)
  1. AMLODIPINE [Suspect]
     Active Substance: AMLODIPINE BESYLATE
     Indication: Hypertension
     Dosage: 5 MILLIGRAM DAILY; 1X PER DAY 1 PIECE; AMLODIPINE TABLET   5MG / BRAND NAME NOT SPECIFIED
     Dates: start: 20221118, end: 20221126

REACTIONS (1)
  - Headache [Recovered/Resolved]
